FAERS Safety Report 26124500 (Version 1)
Quarter: 2025Q4

REPORT INFORMATION
  Report Type: Spontaneous
  Country: GB (occurrence: GB)
  Receive Date: 20251205
  Receipt Date: 20251205
  Transmission Date: 20260117
  Serious: Yes (Other)
  Sender: RANBAXY
  Company Number: GB-SUN PHARMACEUTICAL INDUSTRIES LTD-2025RR-539684

PATIENT
  Sex: Female

DRUGS (3)
  1. NOREPINEPHRINE BITARTRATE [Suspect]
     Active Substance: NOREPINEPHRINE BITARTRATE
     Indication: Cardiac failure
     Dosage: UNK
     Route: 040
  2. FUROSEMIDE [Suspect]
     Active Substance: FUROSEMIDE
     Indication: Mitral valve stenosis
     Dosage: UNK
     Route: 065
  3. FUROSEMIDE [Suspect]
     Active Substance: FUROSEMIDE
     Indication: Mitral valve incompetence

REACTIONS (1)
  - Exposure during pregnancy [Unknown]
